FAERS Safety Report 8045187-7 (Version None)
Quarter: 2012Q1

REPORT INFORMATION
  Report Type: 
  Country: None (occurrence: None)
  Receive Date: 20120113
  Receipt Date: 20110413
  Transmission Date: 20120608
  Serious: Yes (Hospitalization)
  Sender: FDA-Public Use
  Company Number: US-ASTRAZENECA-2011SE21873

PATIENT
  Age: 49 Year
  Sex: Male

DRUGS (2)
  1. CYPREXA [Concomitant]
  2. SEROQUEL XR [Suspect]
     Route: 048

REACTIONS (4)
  - DELUSION [None]
  - CONVULSION [None]
  - DIABETES MELLITUS [None]
  - DRUG DOSE OMISSION [None]
